FAERS Safety Report 5268817-1 (Version None)
Quarter: 2007Q1

REPORT INFORMATION
  Report Type: 
  Country: None (occurrence: None)
  Receive Date: 20070319
  Receipt Date: 20070315
  Transmission Date: 20070707
  Serious: Yes (Death, Life-Threatening)
  Sender: FDA-Public Use
  Company Number: DEWYE045815MAR07

PATIENT
  Sex: Male
  Weight: 60 kg

DRUGS (5)
  1. TAZOBAC [Suspect]
     Indication: BRONCHITIS BACTERIAL
     Route: 042
     Dates: start: 20070306, end: 20070310
  2. DECORTIN [Concomitant]
     Dosage: 50 MG
     Route: 048
  3. ACETYLSALICYLIC ACID SRT [Concomitant]
     Dosage: 100 MG
     Route: 048
     Dates: start: 20070302, end: 20070309
  4. PANTOPRAZOLE SODIUM [Concomitant]
     Indication: PROPHYLAXIS AGAINST GASTROINTESTINAL ULCER
     Dosage: 40 MG
     Route: 048
     Dates: start: 20070122, end: 20070309
  5. METOPROLOL SUCCINATE [Concomitant]
     Indication: HYPERTENSION
     Dosage: 47.5 MG
     Route: 048
     Dates: start: 20070122, end: 20070309

REACTIONS (2)
  - CEREBRAL HAEMORRHAGE [None]
  - THROMBOCYTOPENIA [None]
